FAERS Safety Report 19374072 (Version 2)
Quarter: 2022Q1

REPORT INFORMATION
  Report Type: Spontaneous
  Country: US (occurrence: US)
  Receive Date: 20210603
  Receipt Date: 20220221
  Transmission Date: 20220423
  Serious: Yes (Other)
  Sender: FDA-Public Use
  Company Number: US-GILEAD-2021-0534101

PATIENT
  Sex: Male
  Weight: 79.365 kg

DRUGS (30)
  1. TRUVADA [Suspect]
     Active Substance: EMTRICITABINE\TENOFOVIR DISOPROXIL FUMARATE
     Indication: HIV infection
     Dosage: UNK
     Route: 048
     Dates: start: 2004, end: 2015
  2. VIREAD [Suspect]
     Active Substance: TENOFOVIR DISOPROXIL FUMARATE
     Indication: HIV infection
     Dosage: UNK
     Route: 065
     Dates: start: 2004, end: 2004
  3. SUSTIVA [Concomitant]
     Active Substance: EFAVIRENZ
  4. TRIUMEQ [Concomitant]
     Active Substance: ABACAVIR SULFATE\DOLUTEGRAVIR SODIUM\LAMIVUDINE
  5. AMLODIPINE [Concomitant]
     Active Substance: AMLODIPINE BESYLATE
  6. AMOXICILLIN [Concomitant]
     Active Substance: AMOXICILLIN
  7. AZITHROMYCIN [Concomitant]
     Active Substance: AZITHROMYCIN
  8. BENZONATATE [Concomitant]
     Active Substance: BENZONATATE
  9. BISACODYL [Concomitant]
     Active Substance: BISACODYL
  10. CIPROFLOXACIN [Concomitant]
     Active Substance: CIPROFLOXACIN
  11. CLONIDINE [Concomitant]
     Active Substance: CLONIDINE
  12. DIPHENOXYLATE [Concomitant]
     Active Substance: DIPHENOXYLATE
  13. DOVATO [Concomitant]
     Active Substance: DOLUTEGRAVIR SODIUM\LAMIVUDINE
  14. ERGOCALCIFEROL [Concomitant]
     Active Substance: ERGOCALCIFEROL
  15. FEXOFENADINE [Concomitant]
     Active Substance: FEXOFENADINE HYDROCHLORIDE
  16. FLUCONAZOLE [Concomitant]
     Active Substance: FLUCONAZOLE
  17. FLUTICASONE [Concomitant]
     Active Substance: FLUTICASONE
  18. GAVILYTE - C [Concomitant]
     Active Substance: POLYETHYLENE GLYCOL 3350\POTASSIUM CHLORIDE\SODIUM BICARBONATE\SODIUM CHLORIDE\SODIUM SULFATE
  19. LIQUITEARS [Concomitant]
     Active Substance: POLYVINYL ALCOHOL
  20. LISINOPRIL [Concomitant]
     Active Substance: LISINOPRIL
  21. LUMIGAN [Concomitant]
     Active Substance: BIMATOPROST
  22. MUCINEX [Concomitant]
     Active Substance: GUAIFENESIN
  23. OMEPRAZOLE [Concomitant]
     Active Substance: OMEPRAZOLE
  24. ROSUVASTATIN [Concomitant]
     Active Substance: ROSUVASTATIN
  25. SHINGRIX [Concomitant]
     Active Substance: RECOMBINANT VARICELLA ZOSTER VIRUS (VZV) GLYCOPROTEIN E
  26. TAB A VITE [Concomitant]
  27. KALETRA [Concomitant]
     Active Substance: LOPINAVIR\RITONAVIR
  28. RETROVIR [Concomitant]
     Active Substance: ZIDOVUDINE
  29. NORVIR [Concomitant]
     Active Substance: RITONAVIR
  30. LEXIVA [Concomitant]
     Active Substance: FOSAMPRENAVIR CALCIUM

REACTIONS (14)
  - Chronic kidney disease [Not Recovered/Not Resolved]
  - Chronic kidney disease [Not Recovered/Not Resolved]
  - Emotional distress [Not Recovered/Not Resolved]
  - Anhedonia [Unknown]
  - Pain [Not Recovered/Not Resolved]
  - Anxiety [Unknown]
  - Pollakiuria [Unknown]
  - Musculoskeletal disorder [Unknown]
  - Decreased activity [Unknown]
  - Mood swings [Unknown]
  - Asocial behaviour [Unknown]
  - Depression [Not Recovered/Not Resolved]
  - Asthenia [Unknown]
  - Asthenia [Unknown]

NARRATIVE: CASE EVENT DATE: 20040101
